FAERS Safety Report 20057231 (Version 4)
Quarter: 2022Q1

REPORT INFORMATION
  Report Type: Spontaneous
  Country: US (occurrence: US)
  Receive Date: 20211111
  Receipt Date: 20220114
  Transmission Date: 20220423
  Serious: No
  Sender: FDA-Public Use
  Company Number: US-SANOFI-00845419

PATIENT
  Sex: Female

DRUGS (1)
  1. ENOXAPARIN SODIUM [Suspect]
     Active Substance: ENOXAPARIN SODIUM
     Indication: Pregnancy
     Dosage: 0.6 ML, QOD
     Route: 065

REACTIONS (3)
  - Injection site haemorrhage [Unknown]
  - Device safety feature issue [Unknown]
  - Maternal exposure during pregnancy [Unknown]
